FAERS Safety Report 12535996 (Version 1)
Quarter: 2016Q3

REPORT INFORMATION
  Report Type: Spontaneous
  Country: US (occurrence: None)
  Receive Date: 20160706
  Receipt Date: 20160706
  Transmission Date: 20161109
  Serious: Yes (Disabling)
  Sender: FDA-Public Use
  Company Number: None

PATIENT
  Age: 55 Year
  Sex: Female
  Weight: 60.33 kg

DRUGS (26)
  1. VIT B-12 [Concomitant]
  2. FOLVITE [Concomitant]
     Active Substance: FOLIC ACID
  3. NAPROXEN (NAPROSYN) [Concomitant]
  4. CYCLOBENZAPRINE [Concomitant]
     Active Substance: CYCLOBENZAPRINE
  5. PEPCID [Concomitant]
     Active Substance: FAMOTIDINE
  6. NEURONTIN [Concomitant]
     Active Substance: GABAPENTIN
  7. NEURONTIN [Concomitant]
     Active Substance: GABAPENTIN
  8. NORCO [Concomitant]
     Active Substance: ACETAMINOPHEN\HYDROCODONE BITARTRATE
  9. PEPCID [Concomitant]
     Active Substance: FAMOTIDINE
  10. BENADRYL [Concomitant]
     Active Substance: DIPHENHYDRAMINE HYDROCHLORIDE
  11. PREDNISONE. [Concomitant]
     Active Substance: PREDNISONE
  12. DELTASONE [Concomitant]
     Active Substance: PREDNISONE
  13. HYDROCODONE [Concomitant]
     Active Substance: HYDROCODONE
  14. CREON [Concomitant]
     Active Substance: PANCRELIPASE AMYLASE\PANCRELIPASE LIPASE\PANCRELIPASE PROTEASE
  15. VITAMIN D3 [Concomitant]
     Active Substance: CHOLECALCIFEROL
  16. THIAMINE. [Concomitant]
     Active Substance: THIAMINE
  17. TYLENOL [Concomitant]
     Active Substance: ACETAMINOPHEN
  18. CREON [Concomitant]
     Active Substance: PANCRELIPASE AMYLASE\PANCRELIPASE LIPASE\PANCRELIPASE PROTEASE
  19. AMOXICILLIN (AUGMENTIN) [Concomitant]
  20. TYLENOL [Concomitant]
     Active Substance: ACETAMINOPHEN
  21. AMOXICILLIN. [Concomitant]
     Active Substance: AMOXICILLIN
  22. CLONAZEPAM (KLONOPIN) [Concomitant]
  23. CIPROFLOXACIN HCL 750MG BAYER HEALTHCARE PHARMACEUTICALS INC. [Suspect]
     Active Substance: CIPROFLOXACIN HYDROCHLORIDE
     Indication: MASTOIDITIS
     Route: 048
     Dates: start: 20160606, end: 20160614
  24. KLONOPIN [Concomitant]
     Active Substance: CLONAZEPAM
  25. DIPHENHYDRAMINE (BENADRYL) [Concomitant]
  26. FOLIC ACID (FOLVITE) [Concomitant]

REACTIONS (10)
  - Unevaluable event [None]
  - Restlessness [None]
  - Chest pain [None]
  - Dysphagia [None]
  - Arthralgia [None]
  - Abdominal pain [None]
  - Pruritus [None]
  - Dyspnoea [None]
  - Dizziness [None]
  - Throat tightness [None]

NARRATIVE: CASE EVENT DATE: 20160612
